FAERS Safety Report 25130154 (Version 1)
Quarter: 2025Q1

REPORT INFORMATION
  Report Type: Report from Study
  Country: CA (occurrence: CA)
  Receive Date: 20250327
  Receipt Date: 20250327
  Transmission Date: 20250408
  Serious: Yes (Other)
  Sender: TAKEDA
  Company Number: CA-TAKEDA-2024TUS074928

PATIENT
  Age: 30 Year
  Sex: Female
  Weight: 52.1 kg

DRUGS (11)
  1. VEDOLIZUMAB [Suspect]
     Active Substance: VEDOLIZUMAB
     Indication: Colitis ulcerative
  2. VEDOLIZUMAB [Suspect]
     Active Substance: VEDOLIZUMAB
  3. VEDOLIZUMAB [Suspect]
     Active Substance: VEDOLIZUMAB
  4. VEDOLIZUMAB [Suspect]
     Active Substance: VEDOLIZUMAB
  5. CORTISONE [Concomitant]
     Active Substance: CORTISONE
  6. CALCIUM\VITAMIN D [Concomitant]
     Active Substance: CALCIUM\VITAMIN D
  7. PENTASA [Concomitant]
     Active Substance: MESALAMINE
  8. SUMATRIPTAN [Concomitant]
     Active Substance: SUMATRIPTAN
  9. AVENTYL [Concomitant]
     Active Substance: NORTRIPTYLINE HYDROCHLORIDE
  10. LINACLOTIDE [Concomitant]
     Active Substance: LINACLOTIDE
  11. VITAMINS [Concomitant]
     Active Substance: VITAMINS

REACTIONS (16)
  - Postpartum haemorrhage [Not Recovered/Not Resolved]
  - High risk pregnancy [Unknown]
  - Pain [Unknown]
  - Vertigo [Unknown]
  - Otolithiasis [Unknown]
  - Bacterial test positive [Unknown]
  - Arthritis [Not Recovered/Not Resolved]
  - Dizziness [Recovered/Resolved]
  - Sensitive skin [Not Recovered/Not Resolved]
  - Pregnancy [Recovered/Resolved]
  - Maternal exposure during breast feeding [Not Recovered/Not Resolved]
  - Pain of skin [Not Recovered/Not Resolved]
  - Malaise [Not Recovered/Not Resolved]
  - Rhinorrhoea [Unknown]
  - Oropharyngeal pain [Not Recovered/Not Resolved]
  - Cough [Unknown]

NARRATIVE: CASE EVENT DATE: 20241201
